FAERS Safety Report 12346325 (Version 1)
Quarter: 2016Q2

REPORT INFORMATION
  Report Type: Spontaneous
  Country: US (occurrence: None)
  Receive Date: 20160506
  Receipt Date: 20160506
  Transmission Date: 20160815
  Serious: Yes (Other)
  Sender: FDA-Public Use
  Company Number: None

PATIENT
  Age: 63 Year
  Sex: Female
  Weight: 99.79 kg

DRUGS (5)
  1. VIT A [Concomitant]
  2. VITAMIN B12 [Concomitant]
     Active Substance: CYANOCOBALAMIN
  3. ZYCLARA [Suspect]
     Active Substance: IMIQUIMOD
     Indication: ACTINIC KERATOSIS
     Dosage: APPLIED TO A SURFACE, USUALLY THE SKIN
  4. VITAMIN C [Concomitant]
     Active Substance: ASCORBIC ACID
  5. GABAPENTIN. [Concomitant]
     Active Substance: GABAPENTIN

REACTIONS (2)
  - Flank pain [None]
  - Herpes zoster [None]

NARRATIVE: CASE EVENT DATE: 20160429
